FAERS Safety Report 12195640 (Version 2)
Quarter: 2016Q2

REPORT INFORMATION
  Report Type: Report from Study
  Country: CA (occurrence: CA)
  Receive Date: 20160321
  Receipt Date: 20160404
  Transmission Date: 20160815
  Serious: Yes (Death)
  Sender: FDA-Public Use
  Company Number: CA-ABBVIE-16K-028-1586972-00

PATIENT
  Age: 87 Year
  Sex: Female

DRUGS (3)
  1. CELEBREX [Concomitant]
     Active Substance: CELECOXIB
     Indication: PRODUCT USED FOR UNKNOWN INDICATION
     Dates: start: 2002
  2. HUMIRA [Suspect]
     Active Substance: ADALIMUMAB
     Indication: RHEUMATOID ARTHRITIS
     Route: 058
     Dates: start: 20071121, end: 20151225
  3. METHOTREXATE [Suspect]
     Active Substance: METHOTREXATE
     Indication: PRODUCT USED FOR UNKNOWN INDICATION
     Route: 048
     Dates: start: 20020502, end: 20151227

REACTIONS (8)
  - Bronchiectasis [Unknown]
  - Respiratory tract infection [Fatal]
  - Pulmonary mass [Unknown]
  - Dyspnoea [Unknown]
  - Respiratory tract infection [Recovered/Resolved]
  - Dyspnoea [Fatal]
  - General physical health deterioration [Fatal]
  - Pneumonitis [Fatal]

NARRATIVE: CASE EVENT DATE: 2015
